FAERS Safety Report 8400386-7 (Version None)
Quarter: 2012Q2

REPORT INFORMATION
  Report Type: 
  Country: None (occurrence: None)
  Receive Date: 20120531
  Receipt Date: 20120529
  Transmission Date: 20120825
  Serious: Yes (Death, Other)
  Sender: FDA-Public Use
  Company Number: FI-AMGEN-FINSP2012018359

PATIENT
  Age: 65 Year
  Sex: Male
  Weight: 73 kg

DRUGS (9)
  1. TEMAZEPAM [Concomitant]
     Dosage: UNK
  2. DEXAMETASON [Concomitant]
     Dosage: UNK
  3. OMEPRAZOLE [Concomitant]
     Dosage: UNK
  4. OXINORM [Concomitant]
     Dosage: UNK
  5. XGEVA [Suspect]
     Indication: METASTASES TO BONE
     Dosage: 120 MG, UNK
     Route: 058
     Dates: start: 20120224
  6. CALCICHEW D3 FORTE [Concomitant]
     Dosage: UNK
  7. LACTULOSE [Concomitant]
     Indication: METASTASES TO BONE
     Dosage: UNK
  8. IBUPROFEN [Concomitant]
     Route: 048
  9. DURAGESIC-100 [Concomitant]
     Indication: PAIN
     Dosage: 25 MUG, UNK
     Route: 062

REACTIONS (7)
  - METASTATIC MALIGNANT MELANOMA [None]
  - METASTASES TO BONE MARROW [None]
  - THROMBOCYTOPENIA [None]
  - TREMOR [None]
  - MYOCLONUS [None]
  - PAIN [None]
  - METASTASES TO BONE [None]
